FAERS Safety Report 5488243-X (Version None)
Quarter: 2007Q4

REPORT INFORMATION
  Report Type: 
  Country: None (occurrence: None)
  Receive Date: 20071017
  Receipt Date: 20071010
  Transmission Date: 20080405
  Serious: No
  Sender: FDA-Public Use
  Company Number: US-ELI_LILLY_AND_COMPANY-US200710002829

PATIENT
  Sex: Male

DRUGS (2)
  1. ZYPREXA [Suspect]
     Indication: MANIA
     Dosage: 5 MG, UNK
     Dates: start: 20070709
  2. CARBAMAZEPINE [Concomitant]
     Indication: BIPOLAR DISORDER
     Dates: start: 20030101

REACTIONS (3)
  - ANAEMIA [None]
  - BLOOD GLUCOSE INCREASED [None]
  - OEDEMA PERIPHERAL [None]
